FAERS Safety Report 21824922 (Version 1)
Quarter: 2023Q1

REPORT INFORMATION
  Report Type: Spontaneous
  Country: AU (occurrence: AU)
  Receive Date: 20230105
  Receipt Date: 20230105
  Transmission Date: 20230418
  Serious: Yes (Life-Threatening, Hospitalization, Other)
  Sender: FDA-Public Use
  Company Number: AU-PURDUE PHARMA-USA-2023-0299122

PATIENT
  Sex: Female
  Weight: 3.155 kg

DRUGS (1)
  1. LIDOCAINE [Suspect]
     Active Substance: LIDOCAINE
     Indication: Episiotomy
     Dosage: UNKNOWN (15 ML OF 2% LIGNOCAINE)
     Route: 065

REACTIONS (2)
  - Neonatal toxicity [Recovered/Resolved]
  - Foetal exposure during delivery [Unknown]
